FAERS Safety Report 7278084-5 (Version None)
Quarter: 2011Q1

REPORT INFORMATION
  Report Type: 
  Country: None (occurrence: None)
  Receive Date: 20110207
  Receipt Date: 20110131
  Transmission Date: 20110831
  Serious: Yes (Hospitalization)
  Sender: FDA-Public Use
  Company Number: US-BRISTOL-MYERS SQUIBB COMPANY-15521883

PATIENT
  Age: 63 Year
  Sex: Female
  Weight: 57 kg

DRUGS (11)
  1. ONDANSETRON [Concomitant]
     Indication: NAUSEA
     Dosage: TWICE DAILY
     Route: 048
  2. ACETAMINOPHEN [Concomitant]
  3. ONDANSETRON [Concomitant]
     Indication: VOMITING
     Dosage: TWICE DAILY
     Route: 048
  4. OXALIPLATIN [Suspect]
     Indication: COLORECTAL CANCER METASTATIC
     Dosage: (CYCLE 3, DAY1)
     Route: 042
     Dates: start: 20101129, end: 20110110
  5. XELODA [Suspect]
     Indication: COLORECTAL CANCER METASTATIC
     Dosage: X14 DAYS TABLETS CYCLE 3, DAY 11
     Route: 048
     Dates: start: 20101129, end: 20110119
  6. POTASSIUM CHLORIDE [Concomitant]
     Dosage: 20MEQ PACKET
     Route: 048
  7. AVASTIN [Suspect]
     Indication: COLORECTAL CANCER METASTATIC
     Route: 042
     Dates: start: 20101129, end: 20110110
  8. COMPAZINE [Concomitant]
     Dates: end: 20110112
  9. DEXAMETHASONE [Concomitant]
     Dates: end: 20110113
  10. DASATINIB [Suspect]
     Indication: COLORECTAL CANCER METASTATIC
     Dosage: 20MG, 50MG TABLETS CYCLE 3, DAY 11
     Route: 048
     Dates: start: 20101129, end: 20110119
  11. TRIAMTERENE AND HYDROCHLOROTHIAZIDE [Concomitant]
     Dates: end: 20110119

REACTIONS (1)
  - LARGE INTESTINE PERFORATION [None]
